FAERS Safety Report 7677571-5 (Version None)
Quarter: 2011Q3

REPORT INFORMATION
  Report Type: 
  Country: None (occurrence: None)
  Receive Date: 20110811
  Receipt Date: 20110811
  Transmission Date: 20111222
  Serious: Yes (Other)
  Sender: FDA-Public Use
  Company Number: None

PATIENT
  Age: 61 Year
  Sex: Female
  Weight: 83.914 kg

DRUGS (2)
  1. LEVOTHYROXINE SODIUM [Suspect]
     Indication: THYROID DISORDER
     Dosage: 1 TABLET
     Route: 048
     Dates: start: 20110529, end: 20110628
  2. LEVOTHYROXINE SODIUM [Concomitant]
     Dosage: 1 TABLET
     Route: 048
     Dates: start: 20110629, end: 20110718

REACTIONS (8)
  - CHEST PAIN [None]
  - BACK PAIN [None]
  - DEREALISATION [None]
  - DISORIENTATION [None]
  - CONFUSIONAL STATE [None]
  - FEELING ABNORMAL [None]
  - DIZZINESS [None]
  - ROAD TRAFFIC ACCIDENT [None]
